FAERS Safety Report 9591290 (Version 1)
Quarter: 2013Q4

REPORT INFORMATION
  Report Type: Spontaneous
  Country: US (occurrence: US)
  Receive Date: 20131003
  Receipt Date: 20131003
  Transmission Date: 20140711
  Serious: No
  Sender: FDA-Public Use
  Company Number: US-AMGEN-USASP2012081086

PATIENT
  Sex: Male
  Weight: 131.52 kg

DRUGS (8)
  1. ENBREL [Suspect]
     Indication: PSORIASIS
     Dosage: UNK
  2. ACETYLSALICYLIC ACID [Concomitant]
     Dosage: UNK
  3. VITAMIN B COMPLEX [Concomitant]
     Dosage: UNK
  4. CALCIUM + VIT D [Concomitant]
     Dosage: UNK
  5. VITAMINS /90003601/ [Concomitant]
     Dosage: UNK UNK, QID
  6. CIALIS [Concomitant]
     Dosage: UNK
  7. NAPROSYN                           /00256201/ [Concomitant]
     Dosage: UNK
  8. VITAMIN D                          /00107901/ [Concomitant]
     Dosage: UNK

REACTIONS (1)
  - Drug ineffective [Unknown]
